FAERS Safety Report 6300074-7 (Version None)
Quarter: 2009Q3

REPORT INFORMATION
  Report Type: 
  Country: None (occurrence: None)
  Receive Date: 20090803
  Receipt Date: 20090720
  Transmission Date: 20100115
  Serious: Yes (Disabling)
  Sender: FDA-Public Use
  Company Number: ADR8972009

PATIENT
  Age: 80 Year
  Sex: Female

DRUGS (8)
  1. ALENDRONIC ACID (MFR: UNKNOWN) [Suspect]
     Indication: OSTEOPOROTIC FRACTURE
     Dosage: 70MG/WEEK ORAL
     Route: 048
     Dates: start: 20080222
  2. ADCAL-D3 [Concomitant]
  3. ASPIRIN [Concomitant]
  4. BEZAFIBRATE [Concomitant]
  5. CO-AMILOFRUSE [Concomitant]
  6. GABAPENTIN [Concomitant]
  7. LOSARTAN [Concomitant]
  8. OMEPRAZOLE [Concomitant]

REACTIONS (3)
  - FALL [None]
  - FEMUR FRACTURE [None]
  - FRACTURE NONUNION [None]
